FAERS Safety Report 10885815 (Version 4)
Quarter: 2015Q2

REPORT INFORMATION
  Report Type: Spontaneous
  Country: DE (occurrence: None)
  Receive Date: 20150302
  Receipt Date: 20150421
  Transmission Date: 20150821
  Serious: Yes (Hospitalization, Other)
  Sender: FDA-Public Use
  Company Number: 2015-10760

PATIENT
  Sex: Male

DRUGS (2)
  1. L-THYROXINE (LEVOTHYROXINE) [Concomitant]
     Active Substance: LEVOTHYROXINE
  2. EYLEA [Suspect]
     Active Substance: AFLIBERCEPT
     Indication: PRODUCT USED FOR UNKNOWN INDICATION
     Dosage: UNK MG MILLIGRAMS (S)

REACTIONS (10)
  - Blood creatinine increased [None]
  - Cough [None]
  - Goitre [None]
  - Syncope [None]
  - Hypertensive crisis [None]
  - Infection [None]
  - Acute coronary syndrome [None]
  - Atelectasis [None]
  - Arteriosclerosis [None]
  - Bradycardia [None]

NARRATIVE: CASE EVENT DATE: 20150211
